FAERS Safety Report 8410770-3 (Version None)
Quarter: 2012Q2

REPORT INFORMATION
  Report Type: 
  Country: None (occurrence: None)
  Receive Date: 20120605
  Receipt Date: 20120528
  Transmission Date: 20120825
  Serious: Yes (Other)
  Sender: FDA-Public Use
  Company Number: JP-ASTELLAS-2012JP004704

PATIENT
  Age: 51 Year
  Sex: Male

DRUGS (2)
  1. FUNGUARD [Suspect]
     Indication: INFECTION PROPHYLAXIS
     Dosage: 50 MG, UNKNOWN/D
     Route: 041
     Dates: start: 20100812, end: 20100828
  2. ITRACONAZOLE [Concomitant]
     Indication: INFECTION PROPHYLAXIS
     Dosage: 200 MG, UNKNOWN/D
     Route: 048
     Dates: start: 20100701, end: 20100811

REACTIONS (3)
  - FUNGAEMIA [None]
  - TRICHOSPORON INFECTION [None]
  - EYE INFECTION FUNGAL [None]
